FAERS Safety Report 5342351-2 (Version None)
Quarter: 2007Q2

REPORT INFORMATION
  Report Type: 
  Country: None (occurrence: None)
  Receive Date: 20070416
  Receipt Date: 20070109
  Transmission Date: 20071010
  Serious: No
  Sender: FDA-Public Use
  Company Number: 2007SP000104

PATIENT
  Age: 46 Year
  Sex: Male
  Weight: 88.4514 kg

DRUGS (2)
  1. LUNESTA [Suspect]
     Indication: INSOMNIA
     Dosage: 2MG; HS; ORAL
     Route: 048
     Dates: start: 20061201, end: 20061201
  2. NEXIUM [Concomitant]

REACTIONS (2)
  - HEADACHE [None]
  - INSOMNIA [None]
